FAERS Safety Report 11045367 (Version 3)
Quarter: 2015Q2

REPORT INFORMATION
  Report Type: Report from Study
  Country: US (occurrence: US)
  Receive Date: 20150417
  Receipt Date: 20150424
  Transmission Date: 20150821
  Serious: Yes (Death, Life-Threatening, Hospitalization)
  Sender: FDA-Public Use
  Company Number: US-009507513-1504USA016634

PATIENT
  Age: 37 Year
  Sex: Male
  Weight: 70.7 kg

DRUGS (6)
  1. VORINOSTAT [Suspect]
     Active Substance: VORINOSTAT
     Dosage: 500 MG, TID, CYCLE 5, ON DAYS 1-3 (CONSOLIDATION, CYCLE=28 DAYS)
     Route: 048
     Dates: start: 20150323, end: 20150326
  2. IDARUBICIN [Suspect]
     Active Substance: IDARUBICIN
     Indication: ACUTE MYELOID LEUKAEMIA
     Dosage: 12 MG/M2/DAY, OVER 15 MIN ON DAYS 4-6 (INDUCTION, CYCLE=28 DAYS)
     Route: 042
     Dates: start: 20140922, end: 20140924
  3. IDARUBICIN [Suspect]
     Active Substance: IDARUBICIN
     Dosage: 8 MG/M2/DAY, CYCLE 5, OVER 15 MIN ON DAYS 4-5 (CONSOLIDATION, CYCLE=28 DAYS)
     Route: 042
     Dates: start: 20140922, end: 20140924
  4. CYTARABINE. [Suspect]
     Active Substance: CYTARABINE
     Indication: ACUTE MYELOID LEUKAEMIA
     Dosage: 1500 MG/M2/DAY, CONTINUOUS IV INFUSION ON DAYS 4-7 (INDUCTION, CYCLE=28 DAYS)
     Route: 042
     Dates: start: 20140922, end: 20140925
  5. CYTARABINE. [Suspect]
     Active Substance: CYTARABINE
     Dosage: 750 MG/M2/DAY, CYCLE 5, CONTINUOUS IV INFUSION ON DAYS 4-6 (CONSOLIDATION, CYCLE=28 DAYS)
     Route: 042
     Dates: start: 20150326, end: 20150328
  6. VORINOSTAT [Suspect]
     Active Substance: VORINOSTAT
     Indication: ACUTE MYELOID LEUKAEMIA
     Dosage: 500 MG, TID, ON DAYS 1-3 (INDUCTION, CYCLE=28DAYS)
     Route: 048
     Dates: start: 20140919, end: 20140921

REACTIONS (4)
  - Acute respiratory distress syndrome [Unknown]
  - Troponin T increased [Unknown]
  - Septic shock [Fatal]
  - Rash maculo-papular [Not Recovered/Not Resolved]

NARRATIVE: CASE EVENT DATE: 20150404
